FAERS Safety Report 5981882-9 (Version None)
Quarter: 2008Q4

REPORT INFORMATION
  Report Type: 
  Country: None (occurrence: None)
  Receive Date: 20081202
  Receipt Date: 20081118
  Transmission Date: 20090506
  Serious: No
  Sender: FDA-Public Use
  Company Number: US025070

PATIENT
  Sex: Male

DRUGS (1)
  1. FENTORA [Suspect]
     Indication: TRIGEMINAL NEURALGIA
     Dosage: BUCCAL
     Route: 002

REACTIONS (1)
  - INCORRECT ROUTE OF DRUG ADMINISTRATION [None]
